FAERS Safety Report 11159456 (Version 2)
Quarter: 2015Q2

REPORT INFORMATION
  Report Type: Spontaneous
  Country: NO (occurrence: NO)
  Receive Date: 20150603
  Receipt Date: 20150612
  Transmission Date: 20150821
  Serious: Yes (Hospitalization, Other)
  Sender: FDA-Public Use
  Company Number: NO-GLAXOSMITHKLINE INC.-NO2015073511

PATIENT
  Age: 2 Year
  Sex: Male

DRUGS (1)
  1. REQUIP [Suspect]
     Active Substance: ROPINIROLE HYDROCHLORIDE
     Indication: WRONG PATIENT RECEIVED MEDICATION
     Dosage: ESTIMATED DRUG INTAKE: 1.6 MG
     Route: 048
     Dates: start: 20150429, end: 20150429

REACTIONS (2)
  - Medication error [Recovered/Resolved]
  - Drug administration error [Recovered/Resolved]

NARRATIVE: CASE EVENT DATE: 20150428
